APPROVED DRUG PRODUCT: EFUDEX
Active Ingredient: FLUOROURACIL
Strength: 5%
Dosage Form/Route: CREAM;TOPICAL
Application: N016831 | Product #003 | TE Code: AB
Applicant: EXTROVIS AG
Approved: Approved Prior to Jan 1, 1982 | RLD: Yes | RS: Yes | Type: RX